FAERS Safety Report 5620360-3 (Version None)
Quarter: 2008Q1

REPORT INFORMATION
  Report Type: 
  Country: None (occurrence: None)
  Receive Date: 20080208
  Receipt Date: 20080125
  Transmission Date: 20080703
  Serious: Yes (Life-Threatening, Hospitalization, Disabling)
  Sender: FDA-Public Use
  Company Number: GB-RANBAXY-2008RR-12800

PATIENT

DRUGS (5)
  1. PAROXETINE HCL [Suspect]
     Indication: ANXIETY
     Dosage: 20 MG, UNK
     Route: 048
     Dates: start: 20071113, end: 20071218
  2. PAROXETINE HCL [Suspect]
     Indication: DEPRESSION
  3. ASPIRIN TABLETS BP 300MG [Concomitant]
     Dosage: 75 MG, UNK
     Route: 048
  4. NASONEX AQUEOUS [Concomitant]
     Route: 045
  5. PARACETAMOL TABLETS BP 500MG [Concomitant]

REACTIONS (2)
  - BLOOD CHOLESTEROL INCREASED [None]
  - CEREBROVASCULAR ACCIDENT [None]
